FAERS Safety Report 6771559-4 (Version None)
Quarter: 2010Q2

REPORT INFORMATION
  Report Type: 
  Country: None (occurrence: None)
  Receive Date: 20100616
  Receipt Date: 20100607
  Transmission Date: 20101027
  Serious: Yes (Hospitalization)
  Sender: FDA-Public Use
  Company Number: DE-ASTRAZENECA-2010SE26760

PATIENT
  Age: 56 Year
  Sex: Male

DRUGS (16)
  1. SEROQUEL [Suspect]
     Route: 048
     Dates: start: 20091002, end: 20091003
  2. SEROQUEL [Suspect]
     Route: 048
     Dates: start: 20091004, end: 20091006
  3. SEROQUEL [Suspect]
     Route: 048
     Dates: start: 20091007, end: 20091011
  4. SEROQUEL [Suspect]
     Route: 048
     Dates: start: 20091012, end: 20091019
  5. SEROQUEL [Suspect]
     Route: 048
     Dates: start: 20091020, end: 20091023
  6. QUILONUM RETARD [Suspect]
     Route: 048
     Dates: end: 20091023
  7. AKINETON [Suspect]
     Route: 048
     Dates: end: 20091023
  8. LORAZEPAM [Suspect]
     Route: 048
     Dates: start: 20090930, end: 20091008
  9. LORAZEPAM [Suspect]
     Route: 048
     Dates: start: 20091009, end: 20091015
  10. LORAZEPAM [Suspect]
     Route: 048
     Dates: start: 20091016
  11. LORAZEPAM [Suspect]
     Route: 048
     Dates: start: 20091017, end: 20091018
  12. LORAZEPAM [Suspect]
     Route: 048
     Dates: start: 20091019, end: 20091022
  13. LORAZEPAM [Suspect]
     Route: 048
     Dates: start: 20091023
  14. DIPIPERON [Suspect]
     Route: 048
     Dates: start: 20091012, end: 20091023
  15. RISPERDAL [Suspect]
     Route: 048
     Dates: start: 20090121
  16. METOPROLOL SUCCINATE [Concomitant]
     Route: 048

REACTIONS (2)
  - SUBILEUS [None]
  - URINARY RETENTION [None]
